FAERS Safety Report 5517464-2 (Version None)
Quarter: 2007Q4

REPORT INFORMATION
  Report Type: 
  Country: None (occurrence: None)
  Receive Date: 20071114
  Receipt Date: 20071031
  Transmission Date: 20080405
  Serious: Yes (Life-Threatening, Hospitalization, Other)
  Sender: FDA-Public Use
  Company Number: JP-PFIZER INC-2007018566

PATIENT
  Sex: Female

DRUGS (6)
  1. MIGLITOL TABLET [Suspect]
     Indication: DIABETES MELLITUS
     Dosage: DAILY DOSE:150MG
     Route: 048
     Dates: start: 20070205, end: 20070223
  2. GLYBURIDE [Concomitant]
     Indication: DIABETES MELLITUS
     Route: 048
  3. SIMVASTATIN [Concomitant]
     Indication: HYPERCHOLESTEROLAEMIA
     Route: 048
     Dates: start: 20020702, end: 20070221
  4. PROBUCOL [Concomitant]
     Indication: HYPERCHOLESTEROLAEMIA
     Route: 048
     Dates: start: 20020702, end: 20070221
  5. EPADEL [Concomitant]
     Route: 048
     Dates: start: 20020702, end: 20070221
  6. ROCALTROL [Concomitant]
     Route: 048
     Dates: start: 20020702, end: 20070221

REACTIONS (4)
  - ACUTE MYOCARDIAL INFARCTION [None]
  - ATRIAL SEPTAL DEFECT ACQUIRED [None]
  - MULTI-ORGAN FAILURE [None]
  - PANCREATITIS ACUTE [None]
